FAERS Safety Report 6512224-8 (Version None)
Quarter: 2009Q4

REPORT INFORMATION
  Report Type: 
  Country: None (occurrence: None)
  Receive Date: 20091222
  Receipt Date: 20090604
  Transmission Date: 20100525
  Serious: No
  Sender: FDA-Public Use
  Company Number: US-ASTRAZENECA-2009UW13664

PATIENT
  Age: 858 Month
  Sex: Female
  Weight: 67.1 kg

DRUGS (5)
  1. CRESTOR [Suspect]
     Indication: BLOOD CHOLESTEROL
     Route: 048
     Dates: start: 20090301, end: 20090401
  2. PROTONIX [Concomitant]
  3. ATENOLOL [Concomitant]
     Indication: HYPERTENSION
  4. CLONIDINE [Concomitant]
  5. XANAX [Concomitant]

REACTIONS (4)
  - ARTHRALGIA [None]
  - BLOOD CHOLESTEROL INCREASED [None]
  - HEART RATE DECREASED [None]
  - PAIN IN EXTREMITY [None]
